FAERS Safety Report 9448340 (Version 1)
Quarter: 2013Q3

REPORT INFORMATION
  Report Type: Spontaneous
  Country: GB (occurrence: GB)
  Receive Date: 20130808
  Receipt Date: 20130808
  Transmission Date: 20140515
  Serious: Yes (Other)
  Sender: FDA-Public Use
  Company Number: GB-ASTRAZENECA-2013SE59090

PATIENT
  Age: 55 Year
  Sex: Female

DRUGS (8)
  1. ANASTRAZOLE TABLETS 1MG [Suspect]
     Route: 048
     Dates: start: 2011
  2. EVEROLIMUS [Suspect]
     Route: 065
     Dates: start: 2013
  3. ZOLEDRONATE [Suspect]
     Route: 065
     Dates: start: 2010
  4. ZOLEDRONATE [Suspect]
     Route: 065
     Dates: start: 2011
  5. CYCLOPHOSPHAMIDE [Concomitant]
     Dosage: 6 CYCLES
     Dates: start: 2010
  6. DOCETAXEL [Concomitant]
     Dosage: 6 CYCLES
  7. EPIRUBICIN [Concomitant]
     Dosage: 6 CYCLES
     Dates: start: 2010
  8. FLUOROURACIL [Concomitant]
     Dosage: 6 CYCLES
     Dates: start: 2011

REACTIONS (7)
  - Cough [Unknown]
  - Malignant neoplasm progression [Unknown]
  - Metastases to liver [Unknown]
  - Metastases to lung [Unknown]
  - Dyspnoea [Unknown]
  - Fatigue [Unknown]
  - Rash [Recovered/Resolved]
